FAERS Safety Report 7908916-6 (Version None)
Quarter: 2011Q4

REPORT INFORMATION
  Report Type: 
  Country: None (occurrence: None)
  Receive Date: 20111111
  Receipt Date: 20111102
  Transmission Date: 20120403
  Serious: Yes (Hospitalization)
  Sender: FDA-Public Use
  Company Number: NL-MEDIMMUNE-MEDI-0013820

PATIENT
  Sex: Female

DRUGS (1)
  1. SYNAGIS [Suspect]
     Indication: BRONCHOPULMONARY DYSPLASIA
     Route: 030
     Dates: start: 20110901, end: 20110926

REACTIONS (8)
  - VOMITING [None]
  - THIRST DECREASED [None]
  - DECREASED APPETITE [None]
  - MALAISE [None]
  - MOANING [None]
  - LISTLESS [None]
  - APATHY [None]
  - PYREXIA [None]
